FAERS Safety Report 5638310-2 (Version None)
Quarter: 2008Q1

REPORT INFORMATION
  Report Type: 
  Country: None (occurrence: None)
  Receive Date: 20080226
  Receipt Date: 20080213
  Transmission Date: 20080703
  Serious: Yes (Hospitalization)
  Sender: FDA-Public Use
  Company Number: FR-AMGEN-UK265775

PATIENT
  Age: 53 Year
  Sex: Male

DRUGS (3)
  1. ARANESP [Suspect]
     Indication: ANAEMIA OF MALIGNANT DISEASE
     Route: 058
     Dates: start: 20071001, end: 20080115
  2. DEXAMETHASONE TAB [Concomitant]
  3. THALIDOMIDE [Concomitant]

REACTIONS (3)
  - HAEMORRHAGE INTRACRANIAL [None]
  - INTRACRANIAL PRESSURE INCREASED [None]
  - POLYCYTHAEMIA [None]
